FAERS Safety Report 24087317 (Version 2)
Quarter: 2024Q3

REPORT INFORMATION
  Report Type: Report from Study
  Country: US (occurrence: US)
  Receive Date: 20240714
  Receipt Date: 20240801
  Transmission Date: 20241017
  Serious: Yes (Other)
  Sender: JOHNSON AND JOHNSON
  Company Number: US-JNJFOC-20240723364

PATIENT
  Age: 32 Year
  Sex: Female

DRUGS (2)
  1. SPRAVATO [Suspect]
     Active Substance: ESKETAMINE
     Indication: Depression
     Dosage: ^^56 MG, 1 TOTAL DOSE^^
     Dates: start: 20240429, end: 20240429
  2. SPRAVATO [Suspect]
     Active Substance: ESKETAMINE
     Dosage: ^^84 MG, 18 TOTAL DOSE^^
     Dates: start: 20240502, end: 20240708

REACTIONS (1)
  - Major depression [Unknown]

NARRATIVE: CASE EVENT DATE: 20240601
